FAERS Safety Report 7773460-6 (Version None)
Quarter: 2011Q3

REPORT INFORMATION
  Report Type: 
  Country: None (occurrence: None)
  Receive Date: 20110922
  Receipt Date: 20110913
  Transmission Date: 20111222
  Serious: Yes (Hospitalization)
  Sender: FDA-Public Use
  Company Number: JP-MERCK-1109USA01618

PATIENT
  Age: 55 Year
  Sex: Female

DRUGS (2)
  1. FOSAMAX [Suspect]
     Indication: OSTEONECROSIS
     Route: 048
     Dates: start: 20080601, end: 20100901
  2. ALLOPURINOL [Concomitant]
     Indication: HYPERURICAEMIA
     Route: 048

REACTIONS (3)
  - FRACTURE DELAYED UNION [None]
  - OSTEONECROSIS OF JAW [None]
  - EXPOSED BONE IN JAW [None]
